FAERS Safety Report 6387843-2 (Version None)
Quarter: 2009Q4

REPORT INFORMATION
  Report Type: 
  Country: None (occurrence: None)
  Receive Date: 20091005
  Receipt Date: 20090921
  Transmission Date: 20100525
  Serious: Yes (Hospitalization, Other)
  Sender: FDA-Public Use
  Company Number: GB-PFIZER INC-2009263931

PATIENT
  Age: 83 Year

DRUGS (3)
  1. DOXAZOSIN MESYLATE [Suspect]
     Indication: HYPERTENSION
     Dosage: UNK
     Route: 048
  2. CYCLOPENTOLATE [Concomitant]
     Indication: MYDRIASIS
     Dosage: 1 %, 1 DROP
     Route: 047
  3. PHENYLEPHRINE [Concomitant]
     Indication: MYDRIASIS
     Dosage: 2.5 %, 1 DROP
     Route: 047

REACTIONS (2)
  - CATARACT [None]
  - FLOPPY IRIS SYNDROME [None]
